FAERS Safety Report 15267299 (Version 3)
Quarter: 2019Q4

REPORT INFORMATION
  Report Type: Report from Study
  Country: None (occurrence: KR)
  Receive Date: 20180810
  Receipt Date: 20191011
  Transmission Date: 20200122
  Serious: Yes (Hospitalization)
  Sender: FDA-Public Use
  Company Number: KR-ABBVIE-18K-090-2448561-00

PATIENT
  Age: 65 Year
  Sex: Male
  Weight: 60.9 kg

DRUGS (30)
  1. MESALAZINE [Concomitant]
     Active Substance: MESALAMINE
     Route: 048
     Dates: start: 20160309
  2. BISOPROLOL FUMARATE. [Concomitant]
     Active Substance: BISOPROLOL FUMARATE
     Indication: HYPERTENSION
     Route: 048
     Dates: start: 20150425
  3. PREDNISOLONE. [Concomitant]
     Active Substance: PREDNISOLONE
     Route: 048
     Dates: start: 20160724, end: 20160731
  4. CEFIXIME. [Concomitant]
     Active Substance: CEFIXIME
     Indication: DIARRHOEA
     Route: 048
     Dates: start: 20160818
  5. AZATHIOPRINE. [Concomitant]
     Active Substance: AZATHIOPRINE
     Route: 048
     Dates: start: 20160719
  6. BISOPROLOL FUMARATE. [Concomitant]
     Active Substance: BISOPROLOL FUMARATE
     Route: 048
     Dates: start: 20160309
  7. FERROUS SULFATE. [Concomitant]
     Active Substance: FERROUS SULFATE
     Indication: ANAEMIA
     Dosage: DRIED FERROUS SULFATE
     Route: 048
     Dates: start: 20121122
  8. MEDILAC DS [Concomitant]
     Indication: DIARRHOEA
     Route: 048
     Dates: start: 20160113
  9. CIPROFLOXACIN. [Concomitant]
     Active Substance: CIPROFLOXACIN
     Indication: ABDOMINAL PAIN
     Dosage: CEFIXIME HYDRATE
     Route: 048
     Dates: start: 20160601, end: 20160601
  10. PREDNISOLONE. [Concomitant]
     Active Substance: PREDNISOLONE
     Route: 048
     Dates: start: 20160719, end: 20160719
  11. METRONIDAZOLE. [Concomitant]
     Active Substance: METRONIDAZOLE
     Indication: DIARRHOEA
     Route: 048
     Dates: start: 20160909, end: 20160914
  12. HUMIRA [Suspect]
     Active Substance: ADALIMUMAB
     Route: 058
     Dates: start: 20151203
  13. RAMOSETRON HYDROCHLORIDE [Concomitant]
     Active Substance: RAMOSETRON HYDROCHLORIDE
     Indication: IRRITABLE BOWEL SYNDROME
     Route: 048
     Dates: start: 20121218
  14. HUMIRA [Suspect]
     Active Substance: ADALIMUMAB
     Route: 058
     Dates: start: 20151119, end: 20151119
  15. PREDNISOLONE. [Concomitant]
     Active Substance: PREDNISOLONE
     Indication: BEHCET^S SYNDROME
     Route: 048
     Dates: start: 20151105, end: 20151119
  16. PREDNISOLONE. [Concomitant]
     Active Substance: PREDNISOLONE
     Route: 048
     Dates: start: 20161117
  17. CALCIUM CARBONATE. [Concomitant]
     Active Substance: CALCIUM CARBONATE
     Indication: CALCIUM DEFICIENCY
     Route: 048
     Dates: start: 20121122, end: 20160108
  18. LANSOPRAZOLE GRANULE [Concomitant]
     Indication: ABDOMINAL PAIN UPPER
     Route: 048
     Dates: start: 20150816, end: 20151105
  19. HUMIRA [Suspect]
     Active Substance: ADALIMUMAB
     Indication: BEHCET^S SYNDROME
     Route: 058
     Dates: start: 20151105, end: 20151105
  20. VANCOMYCIN HYDROCHLORIDE. [Concomitant]
     Active Substance: VANCOMYCIN HYDROCHLORIDE
     Indication: DIARRHOEA
     Route: 048
     Dates: start: 20151216
  21. MESALAZINE [Concomitant]
     Active Substance: MESALAMINE
     Indication: BEHCET^S SYNDROME
     Route: 048
     Dates: start: 20150424
  22. MOXIFLOXACIN HYDROCHLORIDE. [Concomitant]
     Active Substance: MOXIFLOXACIN HYDROCHLORIDE
     Indication: NASOPHARYNGITIS
     Route: 048
     Dates: start: 20160224, end: 20160224
  23. METRONIDAZOLE. [Concomitant]
     Active Substance: METRONIDAZOLE
     Indication: ABDOMINAL PAIN
     Route: 048
     Dates: start: 20160601, end: 20160601
  24. TRESTAN [Concomitant]
     Indication: DECREASED APPETITE
     Route: 048
     Dates: start: 20160612, end: 20160706
  25. MESALAZINE [Concomitant]
     Active Substance: MESALAMINE
     Route: 048
     Dates: start: 20160707
  26. AZATHIOPRINE. [Concomitant]
     Active Substance: AZATHIOPRINE
     Indication: BEHCET^S SYNDROME
     Route: 048
     Dates: start: 20150816, end: 20160127
  27. RAMOSETRON HYDROCHLORIDE [Concomitant]
     Active Substance: RAMOSETRON HYDROCHLORIDE
     Indication: IRRITABLE BOWEL SYNDROME
     Route: 048
     Dates: start: 20141022
  28. CIPROFLOXACIN. [Concomitant]
     Active Substance: CIPROFLOXACIN
     Indication: ABDOMINAL PAIN
     Route: 048
     Dates: start: 20160612, end: 20160612
  29. PREDNISOLONE. [Concomitant]
     Active Substance: PREDNISOLONE
     Route: 048
     Dates: start: 20160712, end: 20160712
  30. CEFIXIME. [Concomitant]
     Active Substance: CEFIXIME
     Route: 048
     Dates: start: 20161117

REACTIONS (7)
  - Behcet^s syndrome [Recovered/Resolved]
  - Colitis [Recovered/Resolved]
  - Septic shock [Recovered/Resolved]
  - Behcet^s syndrome [Recovered/Resolved]
  - Septic shock [Recovered/Resolved]
  - Behcet^s syndrome [Recovered/Resolved]
  - Behcet^s syndrome [Recovered/Resolved]

NARRATIVE: CASE EVENT DATE: 20160102
